FAERS Safety Report 4595880-3 (Version None)
Quarter: 2005Q1

REPORT INFORMATION
  Report Type: 
  Country: None (occurrence: None)
  Receive Date: 20050224
  Receipt Date: 20050224
  Transmission Date: 20050727
  Serious: Yes (Disabling)
  Sender: FDA-Public Use
  Company Number: None

PATIENT
  Age: 27 Year
  Sex: Female
  Weight: 63.5036 kg

DRUGS (4)
  1. KETEK [Suspect]
     Indication: PHARYNGITIS
     Dosage: 2 TABLETS  ONCE DAILY ORAL
     Route: 048
     Dates: start: 20050201, end: 20050205
  2. KETEK [Suspect]
     Indication: SINUSITIS
     Dosage: 2 TABLETS  ONCE DAILY ORAL
     Route: 048
     Dates: start: 20050201, end: 20050205
  3. CLARITIN-D 24 HOUR [Concomitant]
  4. YASMIN [Concomitant]

REACTIONS (5)
  - DIPLOPIA [None]
  - DIZZINESS [None]
  - IMPAIRED WORK ABILITY [None]
  - VISION BLURRED [None]
  - VISUAL ACUITY REDUCED [None]
